FAERS Safety Report 10359746 (Version 1)
Quarter: 2014Q3

REPORT INFORMATION
  Report Type: Spontaneous
  Country: US (occurrence: US)
  Receive Date: 20140804
  Receipt Date: 20140804
  Transmission Date: 20150326
  Serious: Yes (Other)
  Sender: FDA-Public Use
  Company Number: US-ELI_LILLY_AND_COMPANY-US201407008511

PATIENT
  Sex: Male

DRUGS (1)
  1. ZYPREXA [Suspect]
     Active Substance: OLANZAPINE
     Indication: BIPOLAR DISORDER
     Dosage: UNK, BID
     Route: 065
     Dates: start: 20111220

REACTIONS (6)
  - Mental disorder [Unknown]
  - Loss of consciousness [Recovered/Resolved]
  - Road traffic accident [Unknown]
  - Lethargy [Unknown]
  - Poisoning [Unknown]
  - Dysarthria [Unknown]
